FAERS Safety Report 5745594-9 (Version None)
Quarter: 2008Q2

REPORT INFORMATION
  Report Type: 
  Country: None (occurrence: None)
  Receive Date: 20080521
  Receipt Date: 20080509
  Transmission Date: 20081010
  Serious: Yes (Hospitalization)
  Sender: FDA-Public Use
  Company Number: GB-PFIZER INC-2006051391

PATIENT
  Sex: Male

DRUGS (12)
  1. SU-011,248 [Suspect]
     Indication: RENAL CELL CARCINOMA
     Route: 048
  2. BECLOMETHASONE DIPROPIONATE [Concomitant]
     Dosage: TEXT:UNKNOWN-FREQ:UNKNOWN
     Route: 055
     Dates: start: 20060407, end: 20060417
  3. ALBUTEROL [Concomitant]
     Dosage: TEXT:UNKNOWN-FREQ:UNKNOWN
     Route: 055
     Dates: start: 20060407, end: 20060417
  4. ACETYLSALICYLIC ACID SRT [Concomitant]
     Dosage: TEXT:UNKNOWN-FREQ:UNKNOWN
     Route: 048
     Dates: start: 20060409, end: 20060417
  5. GLICLAZIDE [Concomitant]
     Dosage: TEXT:UNKNOWN-FREQ:UNKNOWN
     Route: 048
  6. RAMIPRIL [Concomitant]
     Dosage: TEXT:UNKNOWN-FREQ:UNKNOWN
     Route: 048
     Dates: start: 20060409, end: 20060417
  7. BEZAFIBRATE [Concomitant]
     Dosage: TEXT:UNKNOWN-FREQ:UNKNOWN
     Route: 048
     Dates: start: 20060407, end: 20060416
  8. ACETAMINOPHEN W/ CODEINE [Concomitant]
     Dosage: TEXT:UNKNOWN-FREQ:UNKNOWN
     Route: 048
     Dates: start: 20060408, end: 20060413
  9. TRAMADOL HCL [Concomitant]
     Dosage: TEXT:UNKNOWN-FREQ:UNKNOWN
     Route: 048
     Dates: start: 20060408, end: 20060417
  10. CYCLIZINE [Concomitant]
     Dosage: TEXT:UNKNOWN-FREQ:UNKNOWN
     Route: 030
     Dates: start: 20060409, end: 20060409
  11. DOXAZOSIN MESYLATE [Concomitant]
     Dosage: TEXT:UNKNOWN-FREQ:UNKNOWN
     Route: 048
     Dates: start: 20060409, end: 20060416
  12. HEPARIN [Concomitant]
     Dosage: TEXT:UNKNOWN-FREQ:UNKNOWN
     Route: 058
     Dates: start: 20060408, end: 20060417

REACTIONS (3)
  - LETHARGY [None]
  - PNEUMONIA [None]
  - PYREXIA [None]
